FAERS Safety Report 20441122 (Version 2)
Quarter: 2022Q1

REPORT INFORMATION
  Report Type: Spontaneous
  Country: US (occurrence: US)
  Receive Date: 20220208
  Receipt Date: 20220216
  Transmission Date: 20220423
  Serious: Yes (Hospitalization, Other)
  Sender: FDA-Public Use
  Company Number: US-MLMSERVICE-20220119-3320297-1

PATIENT
  Age: 14 Year
  Sex: Female

DRUGS (5)
  1. METHOTREXATE [Suspect]
     Active Substance: METHOTREXATE
     Indication: B precursor type acute leukaemia
     Dosage: 5 GRAM PER SQUARE METRE (1 CYCLE)
     Route: 042
  2. METHOTREXATE [Suspect]
     Active Substance: METHOTREXATE
     Dosage: 15 MILLIGRAM (MAINTENANCE PHASE)
     Route: 037
  3. LEUCOVORIN [Concomitant]
     Active Substance: LEUCOVORIN
     Indication: B precursor type acute leukaemia
     Dosage: 45 MILLIGRAM/SQ. METER (1 CYCLE 3 DOSES OF LEUCOVORIN 15 MG/M^2 AT HOURS 42, 48, AND 54)
     Route: 065
  4. LEUCOVORIN [Concomitant]
     Active Substance: LEUCOVORIN
     Dosage: 15 MILLIGRAM/SQ. METER AT HOURS 42, 48, AND 54
     Route: 065
  5. MERCAPTOPURINE [Concomitant]
     Active Substance: MERCAPTOPURINE
     Indication: B precursor type acute leukaemia
     Dosage: UNK
     Route: 065

REACTIONS (6)
  - Aphasia [Recovered/Resolved]
  - Dysarthria [Recovered/Resolved]
  - Neurotoxicity [Recovered/Resolved]
  - Paraparesis [Recovered/Resolved]
  - Facial paralysis [Recovered/Resolved]
  - Speech disorder [Recovered/Resolved]
